FAERS Safety Report 16205076 (Version 1)
Quarter: 2019Q2

REPORT INFORMATION
  Report Type: Spontaneous
  Country: US (occurrence: US)
  Receive Date: 20190416
  Receipt Date: 20190416
  Transmission Date: 20190711
  Serious: No
  Sender: FDA-Public Use
  Company Number: US-CHILTERN-US-2019-000375

PATIENT
  Age: 77 Year
  Sex: Female

DRUGS (1)
  1. RHOPRESSA [Suspect]
     Active Substance: NETARSUDIL MESYLATE
     Indication: GLAUCOMA
     Dosage: 1 GTT NIGHTLY LEFT EYE
     Route: 047
     Dates: start: 20180523, end: 201811

REACTIONS (1)
  - Eye allergy [Recovered/Resolved]

NARRATIVE: CASE EVENT DATE: 201811
